FAERS Safety Report 8303578-0 (Version None)
Quarter: 2012Q2

REPORT INFORMATION
  Report Type: 
  Country: None (occurrence: None)
  Receive Date: 20120423
  Receipt Date: 20120418
  Transmission Date: 20120825
  Serious: No
  Sender: FDA-Public Use
  Company Number: US-PFIZER INC-2012096580

PATIENT
  Sex: Female
  Weight: 52.154 kg

DRUGS (7)
  1. LYRICA [Suspect]
     Indication: NEUROPATHY PERIPHERAL
     Dosage: 50 MG, 3X/DAY
     Route: 048
     Dates: start: 20120317, end: 20120401
  2. HUMALOG [Concomitant]
     Indication: DIABETES MELLITUS
     Dosage: UNK
  3. ASPIRIN [Concomitant]
     Indication: PAIN IN EXTREMITY
     Dosage: UNK
  4. ASPIRIN [Concomitant]
  5. LYRICA [Suspect]
     Indication: NEURALGIA
     Dosage: 50 MG, 2X/DAY
     Route: 048
     Dates: start: 20120401, end: 20120412
  6. LANTUS [Concomitant]
     Indication: DIABETES MELLITUS
     Dosage: UNK
  7. ASPIRIN [Concomitant]
     Indication: ARTHRALGIA

REACTIONS (5)
  - DRUG HYPERSENSITIVITY [None]
  - DIZZINESS [None]
  - OEDEMA PERIPHERAL [None]
  - JOINT SWELLING [None]
  - VISION BLURRED [None]
